FAERS Safety Report 7638857-3 (Version None)
Quarter: 2011Q3

REPORT INFORMATION
  Report Type: 
  Country: None (occurrence: None)
  Receive Date: 20110727
  Receipt Date: 20110720
  Transmission Date: 20111222
  Serious: Yes (Death)
  Sender: FDA-Public Use
  Company Number: JP-PFIZER INC-2011093904

PATIENT
  Sex: Male

DRUGS (3)
  1. CELECOXIB [Suspect]
     Indication: OSTEOARTHRITIS
     Dosage: 200 MG DAILY
     Route: 048
     Dates: start: 20080204, end: 20080602
  2. CELECOXIB [Suspect]
     Dosage: 200 MG DAILY
     Route: 048
     Dates: start: 20110128, end: 20110201
  3. LOXOPROFEN SODIUM [Concomitant]
     Dosage: UNK
     Dates: start: 20091116, end: 20100104

REACTIONS (1)
  - LARGE INTESTINE CARCINOMA [None]
